FAERS Safety Report 6757181-4 (Version None)
Quarter: 2010Q2

REPORT INFORMATION
  Report Type: 
  Country: None (occurrence: None)
  Receive Date: 20100607
  Receipt Date: 20100602
  Transmission Date: 20101027
  Serious: Yes (Death)
  Sender: FDA-Public Use
  Company Number: US-BIOGENIDEC-2010BI017899

PATIENT
  Age: 61 Year
  Sex: Female

DRUGS (4)
  1. TYSABRI [Suspect]
     Indication: MULTIPLE SCLEROSIS
     Route: 042
     Dates: start: 20090715, end: 20090715
  2. TYSABRI [Suspect]
     Route: 042
     Dates: start: 20091020, end: 20091020
  3. TYSABRI [Suspect]
     Route: 042
     Dates: start: 20100118, end: 20100118
  4. TYSABRI [Suspect]
     Route: 042
     Dates: start: 20100301, end: 20100301

REACTIONS (1)
  - DEATH [None]
